FAERS Safety Report 6267122-4 (Version None)
Quarter: 2009Q3

REPORT INFORMATION
  Report Type: 
  Country: None (occurrence: None)
  Receive Date: 20090714
  Receipt Date: 20090708
  Transmission Date: 20100115
  Serious: Yes (Life-Threatening, Hospitalization)
  Sender: FDA-Public Use
  Company Number: US-NOVOPROD-289194

PATIENT
  Age: 43 Year
  Sex: Male
  Weight: 74.376 kg

DRUGS (1)
  1. LEVEMIR [Suspect]
     Indication: DRUG USE FOR UNKNOWN INDICATION
     Dosage: 277 U, SINGLE
     Route: 058

REACTIONS (2)
  - INTENTIONAL OVERDOSE [None]
  - SUICIDE ATTEMPT [None]
